FAERS Safety Report 6202491-2 (Version None)
Quarter: 2009Q2

REPORT INFORMATION
  Report Type: 
  Country: None (occurrence: None)
  Receive Date: 20090521
  Receipt Date: 20090521
  Transmission Date: 20091009
  Serious: Yes (Hospitalization)
  Sender: FDA-Public Use
  Company Number: None

PATIENT
  Sex: Female
  Weight: 59.6 kg

DRUGS (7)
  1. SEROQUEL [Suspect]
     Indication: DEMENTIA
     Dosage: PO
     Route: 048
  2. SEROQUEL [Suspect]
     Indication: PSYCHOTIC DISORDER
     Dosage: PO
     Route: 048
  3. TRAZODONE HCL [Concomitant]
  4. SEROQUEL [Concomitant]
  5. LOTENSIN [Concomitant]
  6. LANOXIN [Concomitant]
  7. COUMADIN [Concomitant]

REACTIONS (3)
  - DEHYDRATION [None]
  - INFECTION [None]
  - INTERNATIONAL NORMALISED RATIO INCREASED [None]
